FAERS Safety Report 5720942-4 (Version None)
Quarter: 2008Q2

REPORT INFORMATION
  Report Type: 
  Country: None (occurrence: None)
  Receive Date: 20080423
  Receipt Date: 20071005
  Transmission Date: 20081010
  Serious: Yes (Hospitalization)
  Sender: FDA-Public Use
  Company Number: 249057

PATIENT
  Age: 50 Year
  Sex: Female

DRUGS (3)
  1. AVASTIN [Suspect]
     Indication: COLORECTAL CANCER METASTATIC
     Dates: start: 20070301
  2. CAMPTOSAR [Concomitant]
  3. FLUOROURACIL [Concomitant]

REACTIONS (1)
  - VAGINAL HAEMORRHAGE [None]
